FAERS Safety Report 7857998-9 (Version None)
Quarter: 2011Q4

REPORT INFORMATION
  Report Type: 
  Country: None (occurrence: None)
  Receive Date: 20111027
  Receipt Date: 20111012
  Transmission Date: 20120403
  Serious: Yes (Hospitalization, Other)
  Sender: FDA-Public Use
  Company Number: US-BAYER-2011-006782

PATIENT
  Age: 27 Year
  Sex: Female
  Weight: 95 kg

DRUGS (3)
  1. YAZ [Suspect]
     Indication: OVARIAN CYST
     Dosage: UNK
     Dates: start: 20090701
  2. SYNTHROID [Concomitant]
     Indication: THYROID DISORDER
  3. ALBUTEROL [Concomitant]
     Indication: ASTHMA
     Dosage: UNK
     Dates: start: 19950101

REACTIONS (6)
  - PULMONARY EMBOLISM [None]
  - MENTAL DISORDER [None]
  - DEPRESSION [None]
  - PAIN [None]
  - EMOTIONAL DISTRESS [None]
  - ANXIETY [None]
